FAERS Safety Report 20408882 (Version 4)
Quarter: 2022Q2

REPORT INFORMATION
  Report Type: Spontaneous
  Country: US (occurrence: US)
  Receive Date: 20220201
  Receipt Date: 20220413
  Transmission Date: 20220721
  Serious: No
  Sender: FDA-Public Use
  Company Number: US-GLAXOSMITHKLINE-US2022AMR016767

PATIENT
  Age: 51 Year
  Sex: Female

DRUGS (1)
  1. ZEJULA [Suspect]
     Active Substance: NIRAPARIB
     Indication: Product used for unknown indication
     Dosage: 300 MG, QD
     Dates: start: 20220112

REACTIONS (7)
  - Dry mouth [Unknown]
  - Nausea [Not Recovered/Not Resolved]
  - Pain [Unknown]
  - Arthralgia [Unknown]
  - Constipation [Unknown]
  - Dizziness [Unknown]
  - Full blood count abnormal [Unknown]

NARRATIVE: CASE EVENT DATE: 20220101
